FAERS Safety Report 9053834 (Version 2)
Quarter: 2014Q2

REPORT INFORMATION
  Report Type: Spontaneous
  Country: FR (occurrence: FR)
  Receive Date: 20130207
  Receipt Date: 20140527
  Transmission Date: 20141212
  Serious: Yes (Hospitalization)
  Sender: FDA-Public Use
  Company Number: FR-GLAXOSMITHKLINE-B0863465A

PATIENT
  Age: 80 Year
  Sex: Female

DRUGS (17)
  1. ZOPHREN [Suspect]
     Indication: PRODUCT USED FOR UNKNOWN INDICATION
     Route: 065
     Dates: start: 20121111
  2. PREVISCAN [Suspect]
     Indication: PRODUCT USED FOR UNKNOWN INDICATION
     Dosage: 20MG UNKNOWN
     Route: 048
     Dates: start: 20121029
  3. CORDARONE [Suspect]
     Indication: PRODUCT USED FOR UNKNOWN INDICATION
     Route: 065
     Dates: start: 20121029
  4. TRIFLUCAN [Suspect]
     Indication: PRODUCT USED FOR UNKNOWN INDICATION
     Route: 048
     Dates: start: 20121114
  5. FUNGIZONE [Suspect]
     Indication: PRODUCT USED FOR UNKNOWN INDICATION
     Route: 048
     Dates: start: 20121114
  6. INEXIUM [Concomitant]
     Route: 065
     Dates: start: 2008
  7. NEBIVOLOL [Concomitant]
     Dates: start: 2008
  8. TAHOR [Concomitant]
     Dates: start: 2008
  9. NEURONTIN [Concomitant]
     Dates: start: 2008
  10. LEDERFOLINE [Concomitant]
     Dates: start: 2008
  11. DAFALGAN CODEINE [Concomitant]
     Dates: start: 2008
  12. IXPRIM [Concomitant]
     Dates: start: 2008
  13. VITAMINE B12 [Concomitant]
     Route: 048
     Dates: start: 2008
  14. BACTRIM [Concomitant]
     Dates: start: 2008
  15. LOVENOX [Concomitant]
     Dates: start: 2008
  16. ORACILLIN [Concomitant]
     Dates: start: 2008
  17. NIPENT [Concomitant]
     Dates: start: 20121105, end: 20121105

REACTIONS (6)
  - Toxic skin eruption [Recovered/Resolved]
  - Rash [Recovered/Resolved]
  - Pyrexia [Recovered/Resolved]
  - Sepsis [Recovered/Resolved]
  - Purpura [Recovered/Resolved]
  - Thrombocytopenia [Recovered/Resolved]
